FAERS Safety Report 24974306 (Version 2)
Quarter: 2025Q1

REPORT INFORMATION
  Report Type: Spontaneous
  Country: JP (occurrence: JP)
  Receive Date: 20250217
  Receipt Date: 20250304
  Transmission Date: 20250409
  Serious: Yes (Death)
  Sender: BOEHRINGER INGELHEIM
  Company Number: JP-NBI-2025-BI-008252

PATIENT
  Age: 76 Year
  Sex: Male

DRUGS (3)
  1. OFEV [Suspect]
     Active Substance: NINTEDANIB
     Indication: Idiopathic pulmonary fibrosis
     Dates: start: 202401, end: 2024
  2. OFEV [Suspect]
     Active Substance: NINTEDANIB
     Dates: start: 202402, end: 202403
  3. OFEV [Suspect]
     Active Substance: NINTEDANIB
     Dates: start: 202403, end: 202404

REACTIONS (2)
  - Focal segmental glomerulosclerosis [Fatal]
  - Diarrhoea [Recovering/Resolving]

NARRATIVE: CASE EVENT DATE: 20240301
